FAERS Safety Report 15210458 (Version 7)
Quarter: 2019Q1

REPORT INFORMATION
  Report Type: Report from Study
  Country: US (occurrence: US)
  Receive Date: 20180727
  Receipt Date: 20190207
  Transmission Date: 20190417
  Serious: Yes (Other)
  Sender: FDA-Public Use
  Company Number: US-SEATTLE GENETICS-2018SGN01748

PATIENT
  Age: 17 Year
  Sex: Female
  Weight: 85.2 kg

DRUGS (18)
  1. DACARBAZINE. [Suspect]
     Active Substance: DACARBAZINE
     Indication: HODGKIN^S DISEASE NODULAR SCLEROSIS STAGE IV
     Dosage: 250 MG/M2, QCYCLE
     Route: 042
     Dates: start: 20180403, end: 20180605
  2. MORPHINE [Concomitant]
     Active Substance: MORPHINE
     Indication: PAIN
     Dosage: 15 MG, PRN Q4H
     Route: 048
  3. BENADRYL [Concomitant]
     Active Substance: DIPHENHYDRAMINE HYDROCHLORIDE
     Indication: VOMITING
  4. DOCUSATE SODIUM + SENNA [Concomitant]
     Active Substance: DOCUSATE SODIUM\SENNOSIDE A\SENNOSIDE B
     Indication: CONSTIPATION
     Dosage: 1 DF, PRN BID 50 MG-8.6 MG
     Route: 048
  5. HYDROCORTISONE BUTYRATE. [Concomitant]
     Active Substance: HYDROCORTISONE BUTYRATE
     Dosage: 0.1 %, UNK
  6. BENADRYL [Concomitant]
     Active Substance: DIPHENHYDRAMINE HYDROCHLORIDE
     Indication: NAUSEA
     Dosage: 25 MG, PRN Q6H FOR 10 DAYS
     Route: 048
  7. LORATADINE. [Concomitant]
     Active Substance: LORATADINE
     Dosage: 10 MG, UNK
     Route: 048
  8. RANITIDINE. [Concomitant]
     Active Substance: RANITIDINE
     Dosage: 150 MG, UNK
     Route: 048
  9. PREDNISONE. [Suspect]
     Active Substance: PREDNISONE
     Indication: HODGKIN^S DISEASE NODULAR SCLEROSIS STAGE IV
     Dosage: 60 MG/M2, QCYCLE
     Route: 048
     Dates: start: 20180131, end: 20180616
  10. PREDNISONE. [Suspect]
     Active Substance: PREDNISONE
     Dosage: 40 MG/M2, QCYCLE
     Route: 048
     Dates: end: 20180616
  11. AVEENO [Concomitant]
     Active Substance: DIMETHICONE\HOMOSALATE\OCTINOXATE\OCTISALATE\TITANIUM DIOXIDE
     Indication: DRY SKIN
     Dosage: 1 UNK, UNK
     Route: 061
  12. GABAPENTIN. [Concomitant]
     Active Substance: GABAPENTIN
     Dosage: 300 MG, UNK
     Route: 048
  13. BRENTUXIMAB VEDOTIN [Suspect]
     Active Substance: BRENTUXIMAB VEDOTIN
     Indication: HODGKIN^S DISEASE NODULAR SCLEROSIS STAGE IV
     Dosage: 1.2 MG/KG, QCYCLE
     Route: 042
     Dates: start: 20180131, end: 20180612
  14. CYCLOPHOSPHAMIDE. [Suspect]
     Active Substance: CYCLOPHOSPHAMIDE
     Indication: HODGKIN^S DISEASE NODULAR SCLEROSIS STAGE IV
     Dosage: 500 MG/M2, QCYCLE
     Route: 042
     Dates: start: 20180403, end: 20180612
  15. SEPTRA [Concomitant]
     Active Substance: SULFAMETHOXAZOLE\TRIMETHOPRIM
     Dosage: 2 DF BID MON/TUE/WED
     Route: 048
  16. DOXORUBICIN [Suspect]
     Active Substance: DOXORUBICIN
     Indication: HODGKIN^S DISEASE NODULAR SCLEROSIS STAGE IV
     Dosage: 40 MG/M2, QCYCLE
     Route: 042
     Dates: start: 20180131, end: 20180317
  17. ETOPOSIDE. [Suspect]
     Active Substance: ETOPOSIDE
     Indication: HODGKIN^S DISEASE NODULAR SCLEROSIS STAGE IV
     Dosage: 125 MG/KG, QCYCLE
     Route: 042
     Dates: start: 20180131, end: 20180306
  18. AQUAPHOR                           /01181901/ [Concomitant]
     Indication: DRY SKIN
     Dosage: 1 UNK, UNK
     Route: 061

REACTIONS (1)
  - Brachial plexopathy [Recovered/Resolved]

NARRATIVE: CASE EVENT DATE: 20180625
